FAERS Safety Report 6955851-6 (Version None)
Quarter: 2010Q3

REPORT INFORMATION
  Report Type: 
  Country: None (occurrence: None)
  Receive Date: 20100830
  Receipt Date: 20100817
  Transmission Date: 20110219
  Serious: Yes (Hospitalization)
  Sender: FDA-Public Use
  Company Number: US-ROCHE-722726

PATIENT
  Sex: Female

DRUGS (12)
  1. BEVACIZUMAB [Suspect]
     Indication: BREAST CANCER
     Dosage: LAST DOSE PRIOR TO SAE ON 07 JULY 2010, TEMPORARILY INTERRUPTED.
     Route: 065
     Dates: start: 20100504, end: 20100727
  2. BEVACIZUMAB [Suspect]
     Dosage: RESTARTED.
     Route: 065
     Dates: start: 20100803
  3. CYCLOPHOSPHAMIDE [Suspect]
     Indication: BREAST CANCER
     Dosage: LAST DOSE PRIOR TO SAE ON 06 JULY 2010. TEMPORARILY INTERRUPTED.
     Route: 065
     Dates: start: 20100504, end: 20100727
  4. CYCLOPHOSPHAMIDE [Suspect]
     Dosage: RESTARTED.
     Route: 065
     Dates: start: 20100803
  5. DOCETAXEL [Suspect]
     Indication: BREAST CANCER
     Dosage: LAST DOSE PRIOR TO SAE ON 06 JULY 2010. TEMPORARILY INTERRUPTED.
     Route: 065
     Dates: start: 20100504, end: 20100727
  6. DOCETAXEL [Suspect]
     Dosage: RESTARTED.
     Route: 065
     Dates: start: 20100803
  7. LAMICTAL [Concomitant]
  8. LITHIUM [Concomitant]
  9. ZOLOFT [Concomitant]
  10. SYNTHROID [Concomitant]
  11. ZOCOR [Concomitant]
  12. ZOFRAN [Concomitant]

REACTIONS (1)
  - CONFUSIONAL STATE [None]
